FAERS Safety Report 25720771 (Version 2)
Quarter: 2025Q3

REPORT INFORMATION
  Report Type: Spontaneous
  Country: CA (occurrence: CA)
  Receive Date: 20250825
  Receipt Date: 20250902
  Transmission Date: 20251020
  Serious: Yes (Death, Life-Threatening, Hospitalization, Disabling, Other)
  Sender: SANDOZ
  Company Number: CA-002147023-NVSC2025CA130696

PATIENT
  Age: 43 Year
  Sex: Female
  Weight: 70 kg

DRUGS (69)
  1. ADALIMUMAB [Suspect]
     Active Substance: ADALIMUMAB
     Indication: Rheumatoid arthritis
     Route: 058
  2. ADALIMUMAB [Suspect]
     Active Substance: ADALIMUMAB
     Route: 042
  3. ADALIMUMAB [Suspect]
     Active Substance: ADALIMUMAB
     Route: 048
  4. ADALIMUMAB [Suspect]
     Active Substance: ADALIMUMAB
     Route: 058
  5. ADALIMUMAB [Suspect]
     Active Substance: ADALIMUMAB
     Indication: Psoriatic arthropathy
     Route: 058
  6. ADALIMUMAB [Suspect]
     Active Substance: ADALIMUMAB
     Route: 065
  7. ALENDRONIC ACID [Suspect]
     Active Substance: ALENDRONIC ACID
     Dosage: 20 MG
     Route: 048
  8. ALENDRONIC ACID [Suspect]
     Active Substance: ALENDRONIC ACID
     Dosage: 2000 MG, QD
     Route: 048
  9. ALENDRONIC ACID [Suspect]
     Active Substance: ALENDRONIC ACID
     Route: 058
  10. ALENDRONIC ACID [Suspect]
     Active Substance: ALENDRONIC ACID
     Indication: Rheumatoid arthritis
     Route: 016
  11. ALENDRONIC ACID [Suspect]
     Active Substance: ALENDRONIC ACID
     Route: 016
  12. ALENDRONIC ACID [Suspect]
     Active Substance: ALENDRONIC ACID
     Route: 016
  13. ALENDRONIC ACID [Suspect]
     Active Substance: ALENDRONIC ACID
     Route: 048
  14. ALENDRONIC ACID [Suspect]
     Active Substance: ALENDRONIC ACID
     Route: 048
  15. ALENDRONIC ACID [Suspect]
     Active Substance: ALENDRONIC ACID
     Route: 065
  16. AIMOVIG [Suspect]
     Active Substance: ERENUMAB-AOOE
     Indication: Migraine
     Route: 058
  17. CALCIUM CARBONATE\CHOLECALCIFEROL [Suspect]
     Active Substance: CALCIUM CARBONATE\CHOLECALCIFEROL
     Indication: Product used for unknown indication
     Route: 065
  18. DICLOFENAC POTASSIUM [Suspect]
     Active Substance: DICLOFENAC POTASSIUM
     Indication: Rheumatoid arthritis
     Route: 048
  19. DICLOFENAC POTASSIUM [Suspect]
     Active Substance: DICLOFENAC POTASSIUM
     Route: 065
  20. DICLOFENAC POTASSIUM [Suspect]
     Active Substance: DICLOFENAC POTASSIUM
     Route: 048
  21. DICLOFENAC POTASSIUM [Suspect]
     Active Substance: DICLOFENAC POTASSIUM
     Route: 065
  22. DICLOFENAC SODIUM [Suspect]
     Active Substance: DICLOFENAC SODIUM
     Route: 065
  23. DICLOFENAC SODIUM [Suspect]
     Active Substance: DICLOFENAC SODIUM
     Route: 065
  24. DICLOFENAC SODIUM [Suspect]
     Active Substance: DICLOFENAC SODIUM
     Dosage: 50 MG, QD
     Route: 065
  25. DICLOFENAC SODIUM [Suspect]
     Active Substance: DICLOFENAC SODIUM
     Indication: Rheumatoid arthritis
     Route: 065
  26. DICLOFENAC SODIUM [Suspect]
     Active Substance: DICLOFENAC SODIUM
     Route: 065
  27. DICLOFENAC SODIUM [Suspect]
     Active Substance: DICLOFENAC SODIUM
     Route: 065
  28. DICLOFENAC SODIUM [Suspect]
     Active Substance: DICLOFENAC SODIUM
     Route: 065
  29. DICLOFENAC SODIUM [Suspect]
     Active Substance: DICLOFENAC SODIUM
     Route: 065
  30. DICLOFENAC SODIUM [Suspect]
     Active Substance: DICLOFENAC SODIUM
     Route: 065
  31. DICLOFENAC SODIUM [Suspect]
     Active Substance: DICLOFENAC SODIUM
     Route: 065
  32. DICLOFENAC SODIUM [Suspect]
     Active Substance: DICLOFENAC SODIUM
     Route: 048
  33. DICLOFENAC SODIUM [Suspect]
     Active Substance: DICLOFENAC SODIUM
     Route: 048
  34. DICLOFENAC SODIUM [Suspect]
     Active Substance: DICLOFENAC SODIUM
     Route: 058
  35. DICLOFENAC SODIUM [Suspect]
     Active Substance: DICLOFENAC SODIUM
     Route: 065
  36. DICLOFENAC SODIUM [Suspect]
     Active Substance: DICLOFENAC SODIUM
     Route: 065
  37. DICLOFENAC SODIUM [Suspect]
     Active Substance: DICLOFENAC SODIUM
     Route: 065
  38. ERELZI [Suspect]
     Active Substance: ETANERCEPT-SZZS
     Indication: Rheumatoid arthritis
     Dosage: 50 MG, QW
     Route: 058
  39. ERELZI [Suspect]
     Active Substance: ETANERCEPT-SZZS
     Route: 058
  40. ERELZI [Suspect]
     Active Substance: ETANERCEPT-SZZS
     Route: 065
  41. ERELZI [Suspect]
     Active Substance: ETANERCEPT-SZZS
     Route: 058
  42. ERELZI [Suspect]
     Active Substance: ETANERCEPT-SZZS
     Route: 065
  43. LEFLUNOMIDE [Suspect]
     Active Substance: LEFLUNOMIDE
     Indication: Rheumatoid arthritis
     Dosage: 20 MG, QD
     Route: 009
  44. LEFLUNOMIDE [Suspect]
     Active Substance: LEFLUNOMIDE
     Dosage: 20 MG, QD
     Route: 048
  45. LEFLUNOMIDE [Suspect]
     Active Substance: LEFLUNOMIDE
     Dosage: 1 DOSAGE FORM, QD
     Route: 048
  46. LEFLUNOMIDE [Suspect]
     Active Substance: LEFLUNOMIDE
     Dosage: 1 DOSAGE FORM, QD
     Route: 048
  47. LEFLUNOMIDE [Suspect]
     Active Substance: LEFLUNOMIDE
     Route: 048
  48. LEFLUNOMIDE [Suspect]
     Active Substance: LEFLUNOMIDE
     Route: 065
  49. MYCOPHENOLATE MOFETIL [Suspect]
     Active Substance: MYCOPHENOLATE MOFETIL
     Indication: Rheumatoid arthritis
     Route: 065
  50. MYCOPHENOLATE MOFETIL [Suspect]
     Active Substance: MYCOPHENOLATE MOFETIL
     Route: 065
  51. OXYCODONE [Suspect]
     Active Substance: OXYCODONE
     Dosage: 6 MG, QD
     Route: 065
  52. OXYCODONE [Suspect]
     Active Substance: OXYCODONE
     Indication: Product used for unknown indication
     Dosage: UNK
     Route: 065
  53. OXYCODONE [Suspect]
     Active Substance: OXYCODONE
     Route: 042
  54. QUETIAPINE [Suspect]
     Active Substance: QUETIAPINE
     Indication: Product used for unknown indication
     Route: 065
  55. QUETIAPINE [Suspect]
     Active Substance: QUETIAPINE
     Route: 065
  56. RITUXIMAB [Suspect]
     Active Substance: RITUXIMAB
     Route: 042
  57. RITUXIMAB [Suspect]
     Active Substance: RITUXIMAB
     Route: 065
  58. RITUXIMAB [Suspect]
     Active Substance: RITUXIMAB
     Route: 016
  59. RITUXIMAB [Suspect]
     Active Substance: RITUXIMAB
     Route: 042
  60. RITUXIMAB [Suspect]
     Active Substance: RITUXIMAB
     Route: 042
  61. RITUXIMAB [Suspect]
     Active Substance: RITUXIMAB
     Route: 042
  62. RITUXIMAB [Suspect]
     Active Substance: RITUXIMAB
     Route: 048
  63. RITUXIMAB [Suspect]
     Active Substance: RITUXIMAB
     Indication: Rheumatoid arthritis
     Route: 058
  64. RITUXIMAB [Suspect]
     Active Substance: RITUXIMAB
     Route: 065
  65. COSENTYX [Concomitant]
     Active Substance: SECUKINUMAB
     Route: 048
  66. COSENTYX [Concomitant]
     Active Substance: SECUKINUMAB
     Indication: Psoriatic arthropathy
     Route: 065
  67. COSENTYX [Concomitant]
     Active Substance: SECUKINUMAB
     Indication: Rheumatoid arthritis
     Route: 065
  68. COSENTYX [Concomitant]
     Active Substance: SECUKINUMAB
     Route: 065
  69. COSENTYX [Concomitant]
     Active Substance: SECUKINUMAB
     Route: 065

REACTIONS (24)
  - Oedema peripheral [Fatal]
  - Osteoarthritis [Fatal]
  - Osteoporosis [Fatal]
  - Pain [Fatal]
  - Pain in extremity [Fatal]
  - Pemphigus [Fatal]
  - Pericarditis [Fatal]
  - Peripheral swelling [Fatal]
  - Pneumonia [Fatal]
  - Pruritus [Fatal]
  - Psoriasis [Fatal]
  - Psoriatic arthropathy [Fatal]
  - Pulmonary fibrosis [Fatal]
  - Pyrexia [Fatal]
  - Rash [Fatal]
  - Red blood cell sedimentation rate increased [Fatal]
  - Retinitis [Fatal]
  - Rheumatic fever [Fatal]
  - Intentional product use issue [Fatal]
  - Prescribed underdose [Fatal]
  - Product use issue [Fatal]
  - Prescribed overdose [Fatal]
  - Product use in unapproved indication [Fatal]
  - Off label use [Fatal]
